FAERS Safety Report 20361364 (Version 1)
Quarter: 2022Q1

REPORT INFORMATION
  Report Type: Spontaneous
  Country: US (occurrence: None)
  Receive Date: 20220121
  Receipt Date: 20220121
  Transmission Date: 20220424
  Serious: No
  Sender: FDA-Public Use
  Company Number: 2021A900172

PATIENT

DRUGS (1)
  1. CALQUENCE [Suspect]
     Active Substance: ACALABRUTINIB
     Route: 048

REACTIONS (6)
  - Chest pain [Recovered/Resolved]
  - White blood cell count decreased [Unknown]
  - Headache [Recovered/Resolved]
  - Bone pain [Recovered/Resolved]
  - Pain in extremity [Unknown]
  - Asthenia [Unknown]
